FAERS Safety Report 14200114 (Version 3)
Quarter: 2017Q4

REPORT INFORMATION
  Report Type: Spontaneous
  Country: CA (occurrence: CA)
  Receive Date: 20171117
  Receipt Date: 20171130
  Transmission Date: 20180321
  Serious: Yes (Hospitalization, Disabling)
  Sender: FDA-Public Use
  Company Number: CA-PFIZER INC-2017495137

PATIENT
  Age: 66 Year
  Sex: Male

DRUGS (9)
  1. CARVEDILOL. [Concomitant]
     Active Substance: CARVEDILOL
     Dosage: UNK
  2. FUROSEMIDE. [Concomitant]
     Active Substance: FUROSEMIDE
     Dosage: UNK
  3. HARVONI [Concomitant]
     Active Substance: LEDIPASVIR\SOFOSBUVIR
     Indication: HEPATIC CIRRHOSIS
  4. NITROGLYCERIN. [Concomitant]
     Active Substance: NITROGLYCERIN
     Dosage: UNK
  5. COLCHICINE. [Interacting]
     Active Substance: COLCHICINE
     Indication: GOUT
     Dosage: 0.6 MG, 1X/DAY (LOW-DOSE)
     Route: 065
  6. INSULIN [Concomitant]
     Active Substance: INSULIN NOS
     Dosage: UNK
  7. ALLOPURINOL. [Concomitant]
     Active Substance: ALLOPURINOL
     Dosage: UNK
  8. AMIODARONE HCL [Suspect]
     Active Substance: AMIODARONE HYDROCHLORIDE
     Dosage: UNK
     Route: 065
  9. HARVONI [Concomitant]
     Active Substance: LEDIPASVIR\SOFOSBUVIR
     Indication: HEPATITIS C
     Dosage: UNK

REACTIONS (9)
  - Myopathy [Recovered/Resolved]
  - Pancytopenia [Recovering/Resolving]
  - Drug interaction [Unknown]
  - Alanine aminotransferase increased [Recovering/Resolving]
  - Blood lactate dehydrogenase increased [Recovering/Resolving]
  - Aspartate aminotransferase increased [Recovering/Resolving]
  - Acute motor-sensory axonal neuropathy [Recovered/Resolved]
  - Gamma-glutamyltransferase increased [Recovering/Resolving]
  - Blood alkaline phosphatase increased [Recovering/Resolving]
